FAERS Safety Report 9445623 (Version 1)
Quarter: 2013Q3

REPORT INFORMATION
  Report Type: Spontaneous
  Country: IT (occurrence: IT)
  Receive Date: 20130807
  Receipt Date: 20130807
  Transmission Date: 20140515
  Serious: Yes (Hospitalization)
  Sender: FDA-Public Use
  Company Number: IT-BAYER-2013-093409

PATIENT
  Age: 81 Year
  Sex: Male
  Weight: 76.19 kg

DRUGS (5)
  1. CARDIOASPIRIN [Suspect]
     Indication: PROPHYLAXIS
     Dosage: 100 MG, DAILY DOSE
     Route: 048
     Dates: start: 20000101, end: 20130505
  2. SERTRALIN [Concomitant]
     Dosage: 1 DF, DAILY DOSE
     Route: 048
  3. FINASTERIDE [Concomitant]
     Dosage: 1 DF, DAILY DOSE
     Route: 048
  4. PASADEN [Concomitant]
  5. SPIRIVA [Concomitant]

REACTIONS (3)
  - Subdural haematoma [Recovering/Resolving]
  - Apraxia [Recovering/Resolving]
  - Quadriparesis [Recovering/Resolving]
